FAERS Safety Report 7362173-0 (Version None)
Quarter: 2011Q1

REPORT INFORMATION
  Report Type: 
  Country: None (occurrence: None)
  Receive Date: 20110318
  Receipt Date: 20110308
  Transmission Date: 20110831
  Serious: Yes (Other)
  Sender: FDA-Public Use
  Company Number: US-CEPHALON-US008594

PATIENT
  Age: 56 Year
  Sex: Female

DRUGS (6)
  1. FOSAMAX [Concomitant]
     Dates: start: 19971001
  2. LIPITOR [Concomitant]
     Indication: BLOOD CHOLESTEROL INCREASED
  3. SYNTHROID [Concomitant]
     Indication: THYROID DISORDER
     Dates: start: 19971001
  4. PREMPRO [Concomitant]
     Indication: HORMONE REPLACEMENT THERAPY
     Dates: start: 19980201
  5. ROCALTROL [Concomitant]
     Dates: start: 19971001
  6. GABITRIL [Suspect]
     Indication: BIPOLAR DISORDER
     Route: 048
     Dates: start: 19980914

REACTIONS (4)
  - SKIN EXFOLIATION [None]
  - OROPHARYNGEAL PAIN [None]
  - BLISTER [None]
  - OROPHARYNGEAL BLISTERING [None]
